FAERS Safety Report 23827552 (Version 1)
Quarter: 2024Q2

REPORT INFORMATION
  Report Type: Spontaneous
  Country: US (occurrence: None)
  Receive Date: 20240506
  Receipt Date: 20240506
  Transmission Date: 20240717
  Serious: No
  Sender: FDA-Public Use
  Company Number: None

PATIENT
  Age: 66 Year
  Sex: Female
  Weight: 57.6 kg

DRUGS (1)
  1. PENTOXIFYLLINE [Suspect]
     Active Substance: PENTOXIFYLLINE
     Indication: Cardiovascular disorder

REACTIONS (4)
  - Pruritus [None]
  - Rash [None]
  - Nausea [None]
  - Pharyngeal swelling [None]

NARRATIVE: CASE EVENT DATE: 20240505
